FAERS Safety Report 9001852 (Version 1)
Quarter: 2013Q1

REPORT INFORMATION
  Report Type: Spontaneous
  Country: US (occurrence: US)
  Receive Date: 20130107
  Receipt Date: 20130107
  Transmission Date: 20140127
  Serious: Yes (Hospitalization)
  Sender: FDA-Public Use
  Company Number: US-009507513-1301USA001869

PATIENT
  Age: 22 Year
  Sex: Male

DRUGS (2)
  1. SAPHRIS [Suspect]
     Indication: BIPOLAR DISORDER
     Dosage: 10 MG, DAILY AT NIGHT
     Route: 060
     Dates: start: 20121213
  2. WELLBUTRIN [Concomitant]

REACTIONS (1)
  - Dystonia [Recovered/Resolved]
